FAERS Safety Report 8552749-7 (Version None)
Quarter: 2012Q3

REPORT INFORMATION
  Report Type: 
  Country: None (occurrence: None)
  Receive Date: 20120731
  Receipt Date: 20120729
  Transmission Date: 20120928
  Serious: No
  Sender: FDA-Public Use
  Company Number: US-PFIZER INC-2012183574

PATIENT
  Sex: Female

DRUGS (1)
  1. IBUPROFEN (ADVIL) [Suspect]
     Dosage: UNK

REACTIONS (2)
  - ORAL DISCOMFORT [None]
  - PRODUCT COATING ISSUE [None]
